FAERS Safety Report 5835611-X (Version None)
Quarter: 2008Q3

REPORT INFORMATION
  Report Type: 
  Country: None (occurrence: None)
  Receive Date: 20080806
  Receipt Date: 20080731
  Transmission Date: 20090109
  Serious: Yes (Hospitalization)
  Sender: FDA-Public Use
  Company Number: PHHO2001AU01748

PATIENT
  Sex: Male
  Weight: 95 kg

DRUGS (12)
  1. RAD 666 RAD+ [Suspect]
     Indication: LUNG TRANSPLANT
     Dosage: 1.5 MG, BID
     Route: 048
     Dates: start: 20000216
  2. NEORAL [Suspect]
     Indication: LUNG TRANSPLANT
     Dosage: 60 MG, BID
     Route: 048
     Dates: start: 19970222
  3. PREDNISONE TAB [Suspect]
     Indication: LUNG TRANSPLANT
     Dosage: 5 MG, QD
     Route: 048
     Dates: start: 19970222
  4. CYCLOSPORINE [Concomitant]
  5. LISINOPRIL [Concomitant]
  6. FUROSEMIDE [Concomitant]
  7. BUDESONIDE [Concomitant]
  8. RANITIDINE HCL [Concomitant]
  9. ALENDRONATE SODIUM [Concomitant]
  10. CALTRATE [Concomitant]
  11. RAPAMYCIN [Concomitant]
  12. AZATHIOPRINE [Concomitant]

REACTIONS (5)
  - CELLULITIS [None]
  - IMPAIRED HEALING [None]
  - LACERATION [None]
  - LIMB INJURY [None]
  - LUNG DISORDER [None]
